FAERS Safety Report 11578467 (Version 4)
Quarter: 2015Q4

REPORT INFORMATION
  Report Type: Spontaneous
  Country: CH (occurrence: PK)
  Receive Date: 20150930
  Receipt Date: 20151116
  Transmission Date: 20160304
  Serious: Yes (Life-Threatening)
  Sender: FDA-Public Use
  Company Number: CH-LPDUSPRD-20150748

PATIENT
  Age: 35 Year
  Sex: Female
  Weight: 90 kg

DRUGS (3)
  1. FERINJECT [Suspect]
     Active Substance: FERRIC CARBOXYMALTOSE
     Dosage: 500 MG
     Route: 042
     Dates: start: 20150910, end: 20150910
  2. FOLIC ACID. [Concomitant]
     Active Substance: FOLIC ACID
     Dosage: 400 MCG (400 MCG, 1 IN 1 D)
     Route: 048
     Dates: start: 201501, end: 201503
  3. SIBELIUM [Concomitant]
     Active Substance: FLUNARIZINE
     Dosage: 5 MG (5 MG 1 IN 1 D)
     Route: 048
     Dates: start: 201501, end: 201508

REACTIONS (17)
  - Nausea [Unknown]
  - Flushing [Unknown]
  - Abdominal pain [Unknown]
  - Wheezing [Unknown]
  - Hypotension [Unknown]
  - Back pain [Unknown]
  - Exposure during pregnancy [Unknown]
  - Dyspnoea [Unknown]
  - Vomiting [Unknown]
  - Premature baby [Unknown]
  - Angioedema [Unknown]
  - Hyperventilation [Unknown]
  - Pruritus [Unknown]
  - Respiratory distress [Unknown]
  - Cough [Unknown]
  - Bronchospasm [Unknown]
  - Tachycardia [Unknown]

NARRATIVE: CASE EVENT DATE: 20150910
